FAERS Safety Report 14772864 (Version 3)
Quarter: 2018Q3

REPORT INFORMATION
  Report Type: Spontaneous
  Country: US (occurrence: US)
  Receive Date: 20180418
  Receipt Date: 20180720
  Transmission Date: 20181010
  Serious: No
  Sender: FDA-Public Use
  Company Number: US-PFIZER INC-2018126679

PATIENT
  Age: 68 Year
  Sex: Male

DRUGS (7)
  1. COQ10 [Concomitant]
     Active Substance: UBIDECARENONE
     Dosage: UNK
  2. SUTENT [Suspect]
     Active Substance: SUNITINIB MALATE
     Indication: RENAL CELL CARCINOMA STAGE III
     Dosage: 37.5 MG, CYCLIC (DAILY, 2 WEEKS ON/1 WEEK OFF)
  3. LIPITOR [Concomitant]
     Active Substance: ATORVASTATIN CALCIUM
     Dosage: UNK
  4. ACYCLOVIR. [Concomitant]
     Active Substance: ACYCLOVIR
     Indication: ORAL HERPES
     Dosage: UNK UNK, AS NEEDED (PRN)
  5. GAS?X [Concomitant]
     Active Substance: DIMETHICONE
     Dosage: UNK
  6. AMLODIPINE [Concomitant]
     Active Substance: AMLODIPINE BESYLATE
     Indication: BLOOD PRESSURE ABNORMAL
     Dosage: UNK
  7. SUTENT [Suspect]
     Active Substance: SUNITINIB MALATE
     Dosage: 25 MG, CYCLIC (2 WEEKS ON/1 WEEK OFF)
     Dates: start: 20180401

REACTIONS (6)
  - Nausea [Unknown]
  - Peripheral coldness [Unknown]
  - Flatulence [Recovering/Resolving]
  - Fatigue [Unknown]
  - Body temperature decreased [Unknown]
  - White blood cell count decreased [Unknown]
